FAERS Safety Report 9351645 (Version 1)
Quarter: 2013Q2

REPORT INFORMATION
  Report Type: Spontaneous
  Country: US (occurrence: US)
  Receive Date: 20130617
  Receipt Date: 20130617
  Transmission Date: 20140414
  Serious: No
  Sender: FDA-Public Use
  Company Number: US-PFIZER INC-2013181522

PATIENT
  Sex: Female

DRUGS (2)
  1. CHANTIX [Suspect]
     Dosage: 1 DF, 1 TAB DAILY
  2. CHANTIX [Suspect]
     Dosage: 1/2 TAB DAILY

REACTIONS (4)
  - Abnormal dreams [Unknown]
  - Incorrect drug administration duration [Unknown]
  - Drug prescribing error [Unknown]
  - Nervousness [Unknown]
